FAERS Safety Report 13469919 (Version 2)
Quarter: 2017Q2

REPORT INFORMATION
  Report Type: Spontaneous
  Country: US (occurrence: US)
  Receive Date: 20170422
  Receipt Date: 20170516
  Transmission Date: 20170830
  Serious: No
  Sender: FDA-Public Use
  Company Number: US-JNJFOC-20170417183

PATIENT
  Age: 75 Year
  Sex: Female
  Weight: 53.52 kg

DRUGS (8)
  1. BENADRYL [Suspect]
     Active Substance: DIPHENHYDRAMINE HYDROCHLORIDE
     Indication: HYPERSENSITIVITY
     Route: 048
     Dates: start: 20170410
  2. BENADRYL [Suspect]
     Active Substance: DIPHENHYDRAMINE HYDROCHLORIDE
     Indication: PRURITUS
     Route: 048
     Dates: start: 20170410
  3. FAMOTIDINE. [Suspect]
     Active Substance: FAMOTIDINE
     Indication: PRURITUS
     Route: 065
     Dates: start: 20170410
  4. FAMOTIDINE. [Suspect]
     Active Substance: FAMOTIDINE
     Indication: HYPERSENSITIVITY
     Route: 065
     Dates: start: 20170410
  5. PEPCID [Suspect]
     Active Substance: FAMOTIDINE
     Indication: PRURITUS
     Route: 065
     Dates: start: 20170410
  6. PEPCID [Suspect]
     Active Substance: FAMOTIDINE
     Indication: HYPERSENSITIVITY
     Route: 065
     Dates: start: 20170410
  7. DIPHENHYDRAMINE HYDROCHLORIDE. [Suspect]
     Active Substance: DIPHENHYDRAMINE HYDROCHLORIDE
     Indication: PRURITUS
     Route: 048
     Dates: start: 20170410
  8. DIPHENHYDRAMINE HYDROCHLORIDE. [Suspect]
     Active Substance: DIPHENHYDRAMINE HYDROCHLORIDE
     Indication: HYPERSENSITIVITY
     Route: 048
     Dates: start: 20170410

REACTIONS (2)
  - Product use in unapproved indication [Unknown]
  - Off label use [Unknown]
